FAERS Safety Report 5301998-X (Version None)
Quarter: 2007Q2

REPORT INFORMATION
  Report Type: 
  Country: None (occurrence: None)
  Receive Date: 20070416
  Receipt Date: 20070416
  Transmission Date: 20071010
  Serious: Yes (Hospitalization, Other)
  Sender: FDA-Public Use
  Company Number: None

PATIENT
  Sex: Female
  Weight: 80.7403 kg

DRUGS (1)
  1. ZELNORM [Suspect]
     Indication: IRRITABLE BOWEL SYNDROME
     Dosage: 1 TAB  TWICE DAILY  PO
     Route: 048
     Dates: start: 20000201, end: 20070408

REACTIONS (7)
  - ABASIA [None]
  - DIZZINESS [None]
  - DYSSTASIA [None]
  - LOSS OF CONSCIOUSNESS [None]
  - ORTHOSTATIC HYPOTENSION [None]
  - THROMBOSIS [None]
  - WHEELCHAIR USER [None]
